FAERS Safety Report 4953758-7 (Version None)
Quarter: 2006Q1

REPORT INFORMATION
  Report Type: 
  Country: None (occurrence: None)
  Receive Date: 20060323
  Receipt Date: 20060323
  Transmission Date: 20060701
  Serious: Yes (Hospitalization)
  Sender: FDA-Public Use
  Company Number: None

PATIENT
  Age: 79 Year
  Sex: Male

DRUGS (2)
  1. CAMPATH [Suspect]
     Indication: T-CELL LYMPHOMA
     Dates: start: 20060222, end: 20060101
  2. CHOP [Suspect]
     Indication: T-CELL LYMPHOMA
     Dates: start: 20051123, end: 20060327

REACTIONS (1)
  - FEBRILE NEUTROPENIA [None]
